FAERS Safety Report 9036623 (Version 1)
Quarter: 2013Q1

REPORT INFORMATION
  Report Type: Report from Study
  Country: US (occurrence: US)
  Receive Date: 20130129
  Receipt Date: 20130129
  Transmission Date: 20140127
  Serious: No
  Sender: FDA-Public Use
  Company Number: US-ABBOTT-12P-163-0898931-00

PATIENT
  Sex: Female

DRUGS (2)
  1. HUMIRA 40 MG/0.8 ML PEN [Suspect]
     Indication: PSORIATIC ARTHROPATHY
     Dates: start: 201102, end: 201108
  2. CELEBREX [Concomitant]
     Indication: PSORIATIC ARTHROPATHY

REACTIONS (3)
  - Vulvovaginal mycotic infection [Recovered/Resolved]
  - Genital rash [Not Recovered/Not Resolved]
  - Drug ineffective [Not Recovered/Not Resolved]
